FAERS Safety Report 8482981-2 (Version None)
Quarter: 2012Q3

REPORT INFORMATION
  Report Type: 
  Country: None (occurrence: None)
  Receive Date: 20120702
  Receipt Date: 20120619
  Transmission Date: 20120928
  Serious: Yes (Hospitalization)
  Sender: FDA-Public Use
  Company Number: TR-JNJFOC-20120609727

PATIENT
  Age: 43 Year
  Sex: Female

DRUGS (3)
  1. TOPIRAMATE [Suspect]
     Route: 048
  2. TOPIRAMATE [Suspect]
     Indication: MIGRAINE PROPHYLAXIS
     Dosage: REEXPERIENCED COUGH IN THE SECOND DAY OF TREATMENT AN DSTOPPEDON 10TH DAY OF TREATMENT
     Route: 048
  3. TOPIRAMATE [Suspect]
     Route: 048

REACTIONS (3)
  - SEDATION [None]
  - MIGRAINE [None]
  - COUGH [None]
